FAERS Safety Report 8473655-2 (Version None)
Quarter: 2012Q2

REPORT INFORMATION
  Report Type: 
  Country: None (occurrence: None)
  Receive Date: 20120628
  Receipt Date: 20110830
  Transmission Date: 20120825
  Serious: Yes (Death)
  Sender: FDA-Public Use
  Company Number: US-MYLANLABS-2011S1016403

PATIENT
  Age: 60 Year
  Sex: Female

DRUGS (22)
  1. MIRALAX /00754501/ [Concomitant]
     Dosage: WITH 8 OZ OF WATHER
  2. TASIGNA [Concomitant]
     Dosage: TWO TABLETS
  3. ACETAMINOPHEN [Concomitant]
     Indication: PAIN
     Dosage: PRN
  4. CALCIUM [Concomitant]
  5. VITAMIN D [Concomitant]
     Dosage: TWO TABS
  6. PREVACID [Concomitant]
     Dosage: ONE TAB
  7. ALBUTEROL [Concomitant]
     Dosage: PRN
     Route: 055
  8. SINGULAIR [Concomitant]
     Dosage: TWO TABS
  9. FLONASE [Concomitant]
     Dosage: ONE SPRAY EACH NOSTRIL AT BEDTIME
  10. ONDANSETRON (ZOFRAN) [Concomitant]
     Indication: NAUSEA
     Dosage: ONE TABLET ON TONGUE PRN FOR NAUSEA
  11. SPIRIVA [Concomitant]
     Route: 055
  12. PROZAC [Concomitant]
  13. FLUTICASONE PROPIONATE [Concomitant]
  14. LOR [Concomitant]
  15. IRON TABLETS [Concomitant]
  16. NAPROSYN [Concomitant]
  17. THIOTHIXENE /00099101/ [Concomitant]
  18. SIMVASTATIN [Concomitant]
  19. CLOZAPINE [Suspect]
     Indication: SCHIZOPHRENIA
     Dates: start: 20050101, end: 20110101
  20. ALBUTEROL [Concomitant]
     Indication: WHEEZING
     Route: 055
  21. DOCUSATE [Concomitant]
  22. ADVAIR DISKUS 100/50 [Concomitant]
     Dosage: 500/50 I PUFF

REACTIONS (2)
  - PNEUMONIA ASPIRATION [None]
  - INTESTINAL OBSTRUCTION [None]
